FAERS Safety Report 15602278 (Version 1)
Quarter: 2018Q4

REPORT INFORMATION
  Report Type: Spontaneous
  Country: US (occurrence: US)
  Receive Date: 20181106
  Receipt Date: 20181106
  Transmission Date: 20190205
  Serious: No
  Sender: FDA-Public Use
  Company Number: None

PATIENT
  Age: 59 Year
  Sex: Female

DRUGS (1)
  1. SIMPONI [Suspect]
     Active Substance: GOLIMUMAB
     Indication: RHEUMATOID ARTHRITIS
     Dates: start: 201810

REACTIONS (5)
  - Colitis [None]
  - Pain in extremity [None]
  - Dysuria [None]
  - Condition aggravated [None]
  - Uterine pain [None]

NARRATIVE: CASE EVENT DATE: 20181005
